FAERS Safety Report 5131140-X (Version None)
Quarter: 2006Q3

REPORT INFORMATION
  Report Type: 
  Country: None (occurrence: None)
  Receive Date: 20060830
  Receipt Date: 20060614
  Transmission Date: 20061208
  Serious: Yes (Other)
  Sender: FDA-Public Use
  Company Number: CIP06001386

PATIENT
  Age: 54 Year
  Sex: Female

DRUGS (9)
  1. ASACOL [Suspect]
     Indication: COLITIS ULCERATIVE
     Dosage: 1600 MG, TWICE DAILY, ORAL
     Route: 048
     Dates: start: 20030101, end: 20060101
  2. LASIX [Concomitant]
  3. POTASSIUM CHLORIDE [Concomitant]
  4. EFFEXOR [Concomitant]
  5. EXCEDRIN /BRA/ (PARACETAMOL, CAFFEINE) [Concomitant]
  6. ZYRTEC [Concomitant]
  7. ROWASA [Concomitant]
  8. PRILOSEC [Concomitant]
  9. SINGULAIR [Concomitant]

REACTIONS (3)
  - AGRANULOCYTOSIS [None]
  - NEUTROPENIA [None]
  - PANCYTOPENIA [None]
